FAERS Safety Report 5979583-6 (Version None)
Quarter: 2008Q4

REPORT INFORMATION
  Report Type: 
  Country: None (occurrence: None)
  Receive Date: 20081204
  Receipt Date: 20081128
  Transmission Date: 20090506
  Serious: Yes (Other)
  Sender: FDA-Public Use
  Company Number: JP-ASTRAZENECA-2008AP08807

PATIENT
  Age: 51 Year
  Sex: Male

DRUGS (5)
  1. CRESTOR [Suspect]
     Indication: HYPERLIPIDAEMIA
     Route: 048
     Dates: start: 20071128, end: 20080131
  2. CRESTOR [Suspect]
     Route: 048
     Dates: start: 20080414, end: 20080708
  3. AMLODIN [Concomitant]
     Indication: HYPERTENSION
     Route: 048
     Dates: start: 20071128, end: 20080202
  4. AMLODIN [Concomitant]
     Route: 048
     Dates: start: 20080204
  5. LIPIDIL [Concomitant]
     Indication: HYPERLIPIDAEMIA
     Route: 048
     Dates: start: 20080204, end: 20080413

REACTIONS (1)
  - LIVER DISORDER [None]
